FAERS Safety Report 4691363-0 (Version None)
Quarter: 2005Q2

REPORT INFORMATION
  Report Type: 
  Country: None (occurrence: None)
  Receive Date: 20050610
  Receipt Date: 20050602
  Transmission Date: 20051028
  Serious: Yes (Hospitalization, Other)
  Sender: FDA-Public Use
  Company Number: 2005061587

PATIENT
  Age: 60 Year
  Sex: Male
  Weight: 65.7716 kg

DRUGS (5)
  1. LIPITOR [Suspect]
     Indication: BLOOD CHOLESTEROL INCREASED
     Dosage: ORAL
     Route: 048
     Dates: start: 19940101
  2. ASA (ACETYLSALICYLIC ACID0 [Concomitant]
  3. FUROSEMIDE [Concomitant]
  4. DIGOXIN [Concomitant]
  5. CLOPIDOGREL BISULFATE [Concomitant]

REACTIONS (7)
  - CARDIAC DISORDER [None]
  - CARDIAC FUNCTION TEST ABNORMAL [None]
  - CARDIOMYOPATHY [None]
  - EJECTION FRACTION DECREASED [None]
  - HEART RATE IRREGULAR [None]
  - HYPOXIA [None]
  - SCAR [None]
